FAERS Safety Report 6589589-4 (Version None)
Quarter: 2010Q1

REPORT INFORMATION
  Report Type: 
  Country: None (occurrence: None)
  Receive Date: 20100212
  Receipt Date: 20100128
  Transmission Date: 20100710
  Serious: Yes (Other)
  Sender: FDA-Public Use
  Company Number: TRP_06764_2010

PATIENT
  Sex: Male

DRUGS (1)
  1. INFERGEN [Suspect]
     Indication: DRUG USE FOR UNKNOWN INDICATION
     Dosage: DF SUBCUTANEOUS
     Route: 058

REACTIONS (1)
  - NECROSIS [None]
